FAERS Safety Report 9858651 (Version 9)
Quarter: 2014Q3

REPORT INFORMATION
  Report Type: Report from Study
  Country: SK (occurrence: SK)
  Receive Date: 20140131
  Receipt Date: 20140813
  Transmission Date: 20150326
  Serious: Yes (Other)
  Sender: FDA-Public Use
  Company Number: SK-PFIZER INC-2014019142

PATIENT
  Age: 39 Year
  Sex: Female
  Weight: 130 kg

DRUGS (8)
  1. RIVOCOR [Concomitant]
     Indication: HYPERTENSION
     Dosage: 5 MG, 1X/DAY
     Route: 048
     Dates: start: 20130311
  2. FIXIT [Concomitant]
     Indication: HYPERSENSITIVITY
     Dosage: 180 MG, 1X/DAY
     Route: 048
     Dates: start: 2006, end: 20130830
  3. SUNITINIB MALATE [Suspect]
     Active Substance: SUNITINIB MALATE
     Indication: PANCREATIC NEUROENDOCRINE TUMOUR
     Dosage: 37.5 MG, 1X/DAY
     Route: 048
     Dates: start: 20130113, end: 20140114
  4. OMEPRAZOL [Concomitant]
     Active Substance: OMEPRAZOLE
     Indication: DYSPEPSIA
     Dosage: 20 MG, 1X/DAY
     Route: 048
     Dates: start: 2010
  5. IMUNOR [Concomitant]
     Active Substance: UNSPECIFIED INGREDIENT
     Indication: IMMUNODEFICIENCY
     Dosage: 10 MG, WEEKLY
     Route: 048
     Dates: start: 201211, end: 20140107
  6. DIRONORM [Concomitant]
     Indication: HYPERTENSION
     Dosage: 5 MG, 1X/DAY
     Route: 048
     Dates: start: 20130311
  7. ALGIFEN [Concomitant]
     Indication: TUMOUR PAIN
     Dosage: 10 GTT, AS NEEDED
     Route: 048
     Dates: start: 201206, end: 20140119
  8. DITHIADEN [Concomitant]
     Active Substance: BISULEPIN
     Indication: PRURITUS
     Dosage: UNK, 1X/DAY
     Route: 048
     Dates: start: 20140106, end: 20140111

REACTIONS (1)
  - Non-alcoholic steatohepatitis [Recovered/Resolved with Sequelae]

NARRATIVE: CASE EVENT DATE: 20140115
